FAERS Safety Report 16608372 (Version 2)
Quarter: 2019Q3

REPORT INFORMATION
  Report Type: Report from Study
  Country: US (occurrence: US)
  Receive Date: 20190722
  Receipt Date: 20190731
  Transmission Date: 20191004
  Serious: Yes (Hospitalization, Other)
  Sender: FDA-Public Use
  Company Number: US-PFIZER INC-2019308202

PATIENT
  Age: 63 Year
  Sex: Female

DRUGS (2)
  1. SUTENT [Suspect]
     Active Substance: SUNITINIB MALATE
     Dosage: 50 MG, CYCLIC(4 WEEKS ON, 2 WEEKS OFF)
     Route: 048
     Dates: start: 20190705, end: 20190718
  2. SUTENT [Suspect]
     Active Substance: SUNITINIB MALATE
     Indication: RENAL CELL CARCINOMA
     Dosage: 50 MG, CYCLIC(4 WEEKS ON, 2 WEEKS OFF)
     Route: 048
     Dates: start: 2017

REACTIONS (5)
  - Cerebrovascular accident [Unknown]
  - Loss of consciousness [Unknown]
  - Blood glucose increased [Unknown]
  - Blood pressure increased [Unknown]
  - Hypoaesthesia [Unknown]

NARRATIVE: CASE EVENT DATE: 20190718
